FAERS Safety Report 4962047-6 (Version None)
Quarter: 2006Q2

REPORT INFORMATION
  Report Type: 
  Country: None (occurrence: None)
  Receive Date: 20060403
  Receipt Date: 20060403
  Transmission Date: 20061013
  Serious: Yes (Hospitalization, Other)
  Sender: FDA-Public Use
  Company Number: None

PATIENT
  Sex: Female
  Weight: 51.54 kg

DRUGS (3)
  1. SANDOSTATIN [Suspect]
     Indication: NEOPLASM
     Dosage: 30 MG
     Dates: start: 20060303, end: 20060303
  2. FLUOROURACIL [Concomitant]
  3. MITOMYCIN [Concomitant]

REACTIONS (5)
  - FEBRILE NEUTROPENIA [None]
  - POST PROCEDURAL DIARRHOEA [None]
  - POST PROCEDURAL NAUSEA [None]
  - POST PROCEDURAL VOMITING [None]
  - THROMBOCYTOPENIA [None]
